FAERS Safety Report 10152373 (Version 1)
Quarter: 2014Q2

REPORT INFORMATION
  Report Type: Spontaneous
  Country: PT (occurrence: PT)
  Receive Date: 20140505
  Receipt Date: 20140505
  Transmission Date: 20141212
  Serious: Yes (Other)
  Sender: FDA-Public Use
  Company Number: PT-PFIZER INC-2014120399

PATIENT
  Age: 67 Year
  Sex: Male

DRUGS (7)
  1. PIPERACILLIN/TAZOBACTAM [Suspect]
     Indication: ORGANISING PNEUMONIA
     Dosage: UNK
  2. PIPERACILLIN/TAZOBACTAM [Suspect]
     Indication: INTERSTITIAL LUNG DISEASE
  3. DANAZOL [Concomitant]
  4. PREDNISOLONE [Concomitant]
  5. ANTITHYMOCYTE IMMUNOGLOBULIN [Concomitant]
  6. AZATHIOPRINE [Concomitant]
  7. CYCLOSPORIN A [Concomitant]

REACTIONS (3)
  - Off label use [Unknown]
  - Respiratory disorder [Not Recovered/Not Resolved]
  - Respiratory failure [Not Recovered/Not Resolved]
